FAERS Safety Report 7510734-8 (Version None)
Quarter: 2011Q2

REPORT INFORMATION
  Report Type: 
  Country: None (occurrence: None)
  Receive Date: 20110530
  Receipt Date: 20110520
  Transmission Date: 20111010
  Serious: Yes (Other)
  Sender: FDA-Public Use
  Company Number: PHFR2011GB03172

PATIENT

DRUGS (2)
  1. SUNITINIB MALATE [Suspect]
     Dosage: 50 MG DAILY FOR 4 WEEKS THEN 2 WEEKS OFF TREATMENT TO COMPLETE 6 WEEK COURSE
  2. ZOLEDRONIC ACID [Suspect]
     Dosage: 4 MG, QMO

REACTIONS (1)
  - OSTEONECROSIS OF JAW [None]
